FAERS Safety Report 16567987 (Version 1)
Quarter: 2019Q3

REPORT INFORMATION
  Report Type: Spontaneous
  Country: CA (occurrence: CA)
  Receive Date: 20190712
  Receipt Date: 20190712
  Transmission Date: 20191004
  Serious: Yes (Hospitalization, Other)
  Sender: FDA-Public Use
  Company Number: CA-PFIZER INC-2019298166

PATIENT
  Age: 43 Year
  Sex: Female

DRUGS (11)
  1. LYRICA [Concomitant]
     Active Substance: PREGABALIN
     Indication: PAIN
     Dosage: UNK UNK, BID
     Route: 048
  2. ESCITALOPRAM OXALATE. [Concomitant]
     Active Substance: ESCITALOPRAM OXALATE
     Indication: ANTIDEPRESSANT THERAPY
     Dosage: UNK UNK, QD
     Route: 048
  3. BENADRYL [Concomitant]
     Active Substance: DIPHENHYDRAMINE HYDROCHLORIDE
     Dosage: 50 MILLIGRAM, Q4HR
     Route: 065
  4. OMALIZUMAB. [Suspect]
     Active Substance: OMALIZUMAB
     Indication: CHRONIC SPONTANEOUS URTICARIA
     Dosage: 300 MILLIGRAM
     Route: 058
  5. OMALIZUMAB. [Suspect]
     Active Substance: OMALIZUMAB
     Dosage: UNK
     Route: 058
  6. PANTOPRAZOLE [Suspect]
     Active Substance: PANTOPRAZOLE
     Indication: GASTRIC DISORDER
     Dosage: UNK UNK, QD
     Route: 048
  7. OMALIZUMAB. [Suspect]
     Active Substance: OMALIZUMAB
     Indication: CHRONIC SPONTANEOUS URTICARIA
     Dosage: UNK
     Route: 058
  8. OMALIZUMAB. [Suspect]
     Active Substance: OMALIZUMAB
     Dosage: 300 MILLIGRAM
     Route: 058
  9. NEORAL [Suspect]
     Active Substance: CYCLOSPORINE
     Dosage: 100 MILLIGRAM, BID
     Route: 048
  10. BILASTINE [Concomitant]
     Active Substance: BILASTINE
     Indication: URTICARIA
     Dosage: UNK UNK, QD
     Route: 048
  11. OXAZEPAM. [Concomitant]
     Active Substance: OXAZEPAM
     Indication: ANXIOLYTIC THERAPY
     Dosage: UNK UNK, QD
     Route: 048

REACTIONS (14)
  - Malaise [Not Recovered/Not Resolved]
  - Myalgia [Not Recovered/Not Resolved]
  - Swelling [Not Recovered/Not Resolved]
  - Pain [Not Recovered/Not Resolved]
  - Pain in extremity [Not Recovered/Not Resolved]
  - Synovial cyst [Not Recovered/Not Resolved]
  - Diplopia [Not Recovered/Not Resolved]
  - Pruritus [Not Recovered/Not Resolved]
  - Viral infection [Not Recovered/Not Resolved]
  - Rash pruritic [Not Recovered/Not Resolved]
  - Erythema [Not Recovered/Not Resolved]
  - Mobility decreased [Not Recovered/Not Resolved]
  - Rash erythematous [Not Recovered/Not Resolved]
  - Urticaria [Not Recovered/Not Resolved]
